FAERS Safety Report 18359996 (Version 2)
Quarter: 2022Q1

REPORT INFORMATION
  Report Type: Spontaneous
  Country: US (occurrence: None)
  Receive Date: 20201008
  Receipt Date: 20220309
  Transmission Date: 20220423
  Serious: Yes (Death, Life-Threatening, Hospitalization, Other)
  Sender: FDA-Public Use
  Company Number: US-MLMSERVICE-20200928-2501631-1

PATIENT
  Age: 41 Year
  Sex: Female

DRUGS (19)
  1. HEPARIN [Suspect]
     Active Substance: HEPARIN SODIUM
     Indication: Cerebral venous sinus thrombosis
     Route: 065
     Dates: start: 20181111, end: 20181112
  2. HEPARIN [Suspect]
     Active Substance: HEPARIN SODIUM
     Route: 065
     Dates: start: 20181109, end: 20181110
  3. HEPARIN [Suspect]
     Active Substance: HEPARIN SODIUM
     Route: 065
     Dates: start: 20181112, end: 20181112
  4. HEPARIN [Suspect]
     Active Substance: HEPARIN SODIUM
     Route: 065
     Dates: start: 20181112, end: 20181112
  5. HEPARIN [Suspect]
     Active Substance: HEPARIN SODIUM
     Route: 065
     Dates: start: 20181111, end: 20181111
  6. HEPARIN [Suspect]
     Active Substance: HEPARIN SODIUM
     Route: 065
     Dates: start: 20181114, end: 20181114
  7. HEPARIN [Suspect]
     Active Substance: HEPARIN SODIUM
     Route: 065
     Dates: start: 20181112, end: 20181113
  8. HEPARIN [Suspect]
     Active Substance: HEPARIN SODIUM
     Route: 065
     Dates: start: 20181117, end: 20181118
  9. HEPARIN [Suspect]
     Active Substance: HEPARIN SODIUM
     Route: 065
     Dates: start: 20181111, end: 20181111
  10. HEPARIN [Suspect]
     Active Substance: HEPARIN SODIUM
     Route: 065
     Dates: start: 20181113, end: 20181113
  11. HEPARIN [Suspect]
     Active Substance: HEPARIN SODIUM
     Route: 065
     Dates: start: 20181114, end: 20181117
  12. HEPARIN [Suspect]
     Active Substance: HEPARIN SODIUM
     Route: 065
     Dates: start: 20181110, end: 20181110
  13. HEPARIN [Suspect]
     Active Substance: HEPARIN SODIUM
     Route: 065
     Dates: start: 20181113, end: 20181114
  14. HEPARIN [Suspect]
     Active Substance: HEPARIN SODIUM
     Route: 065
     Dates: start: 20181113, end: 20181113
  15. ALTEPLASE [Suspect]
     Active Substance: ALTEPLASE
     Indication: Cerebral venous sinus thrombosis
     Dosage: ALTEPLASE 10 MG IN 510 ML OF NORMAL SALINE WAS ADMINISTERED AS A CONTINUOUS INFUSION VIA INTRA-SINUS
     Route: 065
     Dates: start: 201811, end: 201811
  16. ETHINYL ESTRADIOL [Suspect]
     Active Substance: ETHINYL ESTRADIOL
     Indication: Oral contraception
     Dosage: UNKNOWN
     Route: 048
  17. ALTEPLASE [Suspect]
     Active Substance: ALTEPLASE
     Indication: Cerebral venous sinus thrombosis
     Dosage: TOTAL OF 3 DOSES
     Route: 065
     Dates: start: 201811, end: 201811
  18. DROSPIRENONE [Suspect]
     Active Substance: DROSPIRENONE
     Indication: Oral contraception
     Dosage: UNKNOWN
     Route: 048
  19. SALINE [Concomitant]
     Active Substance: SODIUM CHLORIDE
     Indication: Product used for unknown indication
     Dosage: ALTEPLASE 10 MG IN 510 ML OF NORMAL SALINE WAS ADMINISTERED AS A CONTINUOUS INFUSION VIA INTRA-SINUS
     Route: 065
     Dates: start: 201811, end: 201811

REACTIONS (4)
  - Intracranial pressure increased [Fatal]
  - Intraventricular haemorrhage [Fatal]
  - Hydrocephalus [Fatal]
  - Condition aggravated [Fatal]

NARRATIVE: CASE EVENT DATE: 20181101
